FAERS Safety Report 26202166 (Version 2)
Quarter: 2025Q4

REPORT INFORMATION
  Report Type: Spontaneous
  Country: GB (occurrence: GB)
  Receive Date: 20251226
  Receipt Date: 20251227
  Transmission Date: 20260118
  Serious: Yes (Other)
  Sender: CELLTRION
  Company Number: None

PATIENT

DRUGS (3)
  1. INFLIXIMAB [Suspect]
     Active Substance: INFLIXIMAB
     Indication: Inflammatory bowel disease
     Dosage: 400 MG
  2. INFLIXIMAB [Suspect]
     Active Substance: INFLIXIMAB
     Dosage: UNK
     Dates: start: 20251105
  3. INFLIXIMAB [Suspect]
     Active Substance: INFLIXIMAB
     Dosage: UNK
     Dates: start: 20251119

REACTIONS (3)
  - Feeling hot [Recovered/Resolved]
  - Flushing [Recovered/Resolved]
  - Back pain [Recovering/Resolving]

NARRATIVE: CASE EVENT DATE: 20251217
